FAERS Safety Report 4826501-X (Version None)
Quarter: 2005Q4

REPORT INFORMATION
  Report Type: 
  Country: None (occurrence: None)
  Receive Date: 20051111
  Receipt Date: 20050310
  Transmission Date: 20060501
  Serious: Yes (Hospitalization, Other)
  Sender: FDA-Public Use
  Company Number: US-MERCK-0503USA02288

PATIENT
  Age: 62 Year
  Sex: Female
  Weight: 48 kg

DRUGS (14)
  1. VIOXX [Suspect]
     Indication: ARTHRALGIA
     Route: 048
     Dates: start: 20020601, end: 20040101
  2. VIOXX [Suspect]
     Route: 048
     Dates: end: 20041001
  3. VIOXX [Suspect]
     Route: 048
     Dates: start: 20020901, end: 20040101
  4. VIOXX [Suspect]
     Route: 048
     Dates: start: 20020821, end: 20020831
  5. PLAVIX [Concomitant]
     Route: 048
  6. ANTIVERT [Concomitant]
     Route: 048
  7. ASPIRIN [Concomitant]
     Route: 048
  8. KLONOPIN [Concomitant]
     Route: 048
  9. PREMARIN [Concomitant]
     Route: 048
  10. TRILEPTAL [Concomitant]
     Route: 048
  11. TOPAMAX [Concomitant]
     Route: 048
  12. SYNTHROID [Concomitant]
     Route: 048
  13. VERAPAMIL [Concomitant]
     Route: 048
  14. FOSAMAX [Concomitant]
     Route: 065

REACTIONS (42)
  - AMNESIA [None]
  - ANAEMIA [None]
  - ANXIETY [None]
  - ATELECTASIS [None]
  - BILIARY DILATATION [None]
  - CEREBROVASCULAR ACCIDENT [None]
  - CHRONIC SINUSITIS [None]
  - CONSTIPATION [None]
  - CONTUSION [None]
  - CONVULSION [None]
  - DEPRESSION [None]
  - DIZZINESS [None]
  - EMOTIONAL DISTRESS [None]
  - FALL [None]
  - GALLBLADDER DISORDER [None]
  - HAEMATOMA [None]
  - HEADACHE [None]
  - HYPOGLYCAEMIA [None]
  - INSOMNIA [None]
  - ISCHAEMIC STROKE [None]
  - JOINT INJURY [None]
  - JOINT SPRAIN [None]
  - LACUNAR INFARCTION [None]
  - LIMB INJURY [None]
  - LIVER FUNCTION TEST ABNORMAL [None]
  - MIGRAINE [None]
  - MIGRAINE WITHOUT AURA [None]
  - MUSCULOSKELETAL CHEST PAIN [None]
  - MYELODYSPLASTIC SYNDROME [None]
  - MYELOPROLIFERATIVE DISORDER [None]
  - OBSTRUCTION GASTRIC [None]
  - OEDEMA [None]
  - OSTEOARTHRITIS [None]
  - PARTIAL SEIZURES WITH SECONDARY GENERALISATION [None]
  - PULMONARY GRANULOMA [None]
  - RENAL FAILURE ACUTE [None]
  - RENAL FAILURE CHRONIC [None]
  - RESTLESS LEGS SYNDROME [None]
  - RIB FRACTURE [None]
  - SINUSITIS [None]
  - SKIN LACERATION [None]
  - TENSION HEADACHE [None]
